FAERS Safety Report 5738113-4 (Version None)
Quarter: 2008Q2

REPORT INFORMATION
  Report Type: 
  Country: None (occurrence: None)
  Receive Date: 20080509
  Receipt Date: 20070809
  Transmission Date: 20081010
  Serious: Yes (Other)
  Sender: FDA-Public Use
  Company Number: PHEH2007US11057

PATIENT
  Sex: Male

DRUGS (3)
  1. TEGRETOL [Suspect]
     Indication: EPILEPSY
     Dosage: 200 MG, BID
  2. TRIPELTAL/OXCARBAMAZEPINE (OXCARBAMAZEPINE) [Concomitant]
  3. INVEGA [Suspect]

REACTIONS (5)
  - APATHY [None]
  - BOREDOM [None]
  - DRUG INTERACTION [None]
  - HALLUCINATION [None]
  - SEXUAL DYSFUNCTION [None]
